FAERS Safety Report 6835713-5 (Version None)
Quarter: 2010Q3

REPORT INFORMATION
  Report Type: 
  Country: None (occurrence: None)
  Receive Date: 20100713
  Receipt Date: 20100706
  Transmission Date: 20110219
  Serious: Yes (Life-Threatening, Hospitalization)
  Sender: FDA-Public Use
  Company Number: US-B.I. PHARMACEUTICALS,INC./RIDGEFIELD-2010-DE-03609GD

PATIENT
  Age: 64 Year
  Sex: Male

DRUGS (9)
  1. PREDNISONE [Suspect]
     Indication: BRONCHIAL HYPERREACTIVITY
     Dosage: 10 MG
     Route: 048
  2. IPRATROPIUM BROMIDE [Suspect]
     Indication: BRONCHIAL HYPERREACTIVITY
     Route: 055
  3. FLUTICASONE W/SALMETEROL [Suspect]
     Indication: BRONCHIAL HYPERREACTIVITY
     Route: 055
  4. MONTELUKAST [Suspect]
     Indication: BRONCHIAL HYPERREACTIVITY
  5. IVERMECTIN [Suspect]
     Indication: STRONGYLOIDIASIS
     Dosage: 18 MG
     Route: 048
  6. METHYLPREDNISOLONE [Suspect]
     Route: 042
  7. ALBUTEROL [Concomitant]
     Indication: BRONCHIAL HYPERREACTIVITY
     Route: 055
  8. ASPIRIN [Concomitant]
  9. PANTOPRAZOLE [Concomitant]

REACTIONS (14)
  - ABDOMINAL PAIN [None]
  - ACUTE LUNG INJURY [None]
  - ALPHA HAEMOLYTIC STREPTOCOCCAL INFECTION [None]
  - CONFUSIONAL STATE [None]
  - DISORIENTATION [None]
  - DYSPNOEA [None]
  - ESCHERICHIA INFECTION [None]
  - NAUSEA [None]
  - PANCREATITIS [None]
  - PNEUMONIA [None]
  - PYREXIA [None]
  - SEPSIS [None]
  - STRONGYLOIDIASIS [None]
  - VOMITING [None]
